FAERS Safety Report 13526282 (Version 1)
Quarter: 2017Q2

REPORT INFORMATION
  Report Type: Spontaneous
  Country: PL (occurrence: PL)
  Receive Date: 20170509
  Receipt Date: 20170509
  Transmission Date: 20170830
  Serious: Yes (Death)
  Sender: FDA-Public Use
  Company Number: PL-ACTELION-A-CH2017-153249

PATIENT
  Age: 73 Year
  Sex: Male

DRUGS (4)
  1. VELETRI [Suspect]
     Active Substance: EPOPROSTENOL
     Indication: PULMONARY ARTERIAL HYPERTENSION
     Dosage: 24 NG/KG, PER MIN
     Route: 042
  2. VELETRI [Suspect]
     Active Substance: EPOPROSTENOL
     Dosage: 0.5 NG/KG, PER MIN
     Route: 042
     Dates: start: 20161122
  3. VELETRI [Suspect]
     Active Substance: EPOPROSTENOL
     Dosage: 19 NG/KG, PER MIN
     Route: 042
  4. SILDENAFIL. [Concomitant]
     Active Substance: SILDENAFIL

REACTIONS (7)
  - Hypotension [Fatal]
  - Right ventricular failure [Fatal]
  - Haemoptysis [Fatal]
  - Pulmonary arterial hypertension [Fatal]
  - Urinary tract infection [Unknown]
  - Diarrhoea [Unknown]
  - Disease progression [Fatal]
